FAERS Safety Report 8525286-3 (Version None)
Quarter: 2012Q3

REPORT INFORMATION
  Report Type: 
  Country: None (occurrence: None)
  Receive Date: 20120720
  Receipt Date: 20120713
  Transmission Date: 20120928
  Serious: Yes (Hospitalization)
  Sender: FDA-Public Use
  Company Number: US-B.I. PHARMACEUTICALS,INC./RIDGEFIELD-2012-BP-15952BP

PATIENT
  Sex: Male

DRUGS (3)
  1. PRADAXA [Suspect]
     Indication: ATRIAL FIBRILLATION
     Dosage: 300 MG
     Route: 048
     Dates: start: 20111228
  2. METOPROLOL SUCCINATE [Concomitant]
     Indication: HEART RATE
     Dosage: 200 MG
     Route: 048
  3. CELEBREX [Suspect]
     Indication: PAIN
     Dates: start: 20120401

REACTIONS (11)
  - PAIN IN EXTREMITY [None]
  - OEDEMA PERIPHERAL [None]
  - DYSPEPSIA [None]
  - LIPOHYPERTROPHY [None]
  - MELAENA [None]
  - ULCER HAEMORRHAGE [None]
  - JOINT SWELLING [None]
  - INSOMNIA [None]
  - MUSCULOSKELETAL PAIN [None]
  - MYALGIA [None]
  - HEART RATE INCREASED [None]
